FAERS Safety Report 23357630 (Version 8)
Quarter: 2025Q2

REPORT INFORMATION
  Report Type: Report from Study
  Country: DE (occurrence: DE)
  Receive Date: 20240102
  Receipt Date: 20250407
  Transmission Date: 20250717
  Serious: Yes (Hospitalization, Other)
  Sender: PFIZER
  Company Number: DE-PFM-2021-08530

PATIENT
  Age: 70 Year
  Sex: Male
  Weight: 79 kg

DRUGS (10)
  1. BRAFTOVI [Suspect]
     Active Substance: ENCORAFENIB
     Indication: Colorectal cancer
     Dosage: 300 MG/DAY
     Route: 048
     Dates: start: 20210310, end: 20210929
  2. BRAFTOVI [Suspect]
     Active Substance: ENCORAFENIB
     Dosage: 225 MG/DAY
     Route: 048
     Dates: start: 20211006, end: 20220111
  3. BRAFTOVI [Suspect]
     Active Substance: ENCORAFENIB
     Dosage: 300 MG/ DAY
     Route: 048
     Dates: start: 20220112, end: 20220629
  4. CETUXIMAB [Suspect]
     Active Substance: CETUXIMAB
     Indication: Colorectal cancer
     Dosage: 250 MG/M2, WEEKLY
     Route: 042
     Dates: start: 20210310, end: 20210908
  5. CETUXIMAB [Suspect]
     Active Substance: CETUXIMAB
     Dosage: 250 MG/M2, WEEKLY
     Route: 042
     Dates: start: 20210922, end: 20210928
  6. CETUXIMAB [Suspect]
     Active Substance: CETUXIMAB
     Dosage: 250 MG/M2, WEEKLY
     Route: 042
     Dates: start: 20211006
  7. DEXAMETHASONE SODIUM PHOSPHATE [Concomitant]
     Active Substance: DEXAMETHASONE SODIUM PHOSPHATE
     Indication: Prophylaxis
     Dosage: 4 MG, WEEKLY
     Route: 048
     Dates: start: 20210310
  8. MINOCYCLINE [Concomitant]
     Active Substance: MINOCYCLINE HYDROCHLORIDE
     Indication: Prophylaxis
     Dosage: 50 MG, DAILY
     Route: 048
     Dates: start: 20210310
  9. DIMETHINDENE MALEATE [Concomitant]
     Active Substance: DIMETHINDENE MALEATE
     Indication: Prophylaxis
     Dosage: 4 MG, WEEKLY
     Route: 042
     Dates: start: 20210310
  10. SODIUM CHLORIDE [Concomitant]
     Active Substance: SODIUM CHLORIDE
     Indication: Prophylaxis
     Dosage: 1000 ML, WEEKLY
     Route: 042
     Dates: start: 20211201

REACTIONS (12)
  - Urinary tract disorder [Recovered/Resolved]
  - Blood creatinine increased [Unknown]
  - Urinary tract obstruction [Recovered/Resolved]
  - Urinary tract disorder [Recovering/Resolving]
  - Visual impairment [Recovered/Resolved]
  - Eye disorder [Recovering/Resolving]
  - Blood creatinine increased [Not Recovered/Not Resolved]
  - Urinary tract disorder [Recovering/Resolving]
  - Blood creatinine increased [Not Recovered/Not Resolved]
  - Cold sweat [Recovered/Resolved]
  - Dizziness [Recovered/Resolved]
  - Anaemia [Not Recovered/Not Resolved]

NARRATIVE: CASE EVENT DATE: 20210722
